FAERS Safety Report 6890412-9 (Version None)
Quarter: 2010Q3

REPORT INFORMATION
  Report Type: 
  Country: None (occurrence: None)
  Receive Date: 20100730
  Receipt Date: 20081021
  Transmission Date: 20110219
  Serious: Yes (Other)
  Sender: FDA-Public Use
  Company Number: US-PFIZER INC-2008088790

PATIENT
  Sex: Female
  Weight: 70.454 kg

DRUGS (8)
  1. LIPITOR [Suspect]
     Indication: BLOOD CHOLESTEROL
     Dates: end: 20081001
  2. WARFARIN SODIUM [Concomitant]
  3. TOPROL-XL [Concomitant]
  4. METOPROLOL TARTRATE [Concomitant]
  5. FUROSEMIDE [Concomitant]
  6. CARTIA XT [Concomitant]
  7. NITROFURANTOIN [Concomitant]
  8. ALENDRONATE SODIUM [Concomitant]

REACTIONS (3)
  - AMNESIA [None]
  - FEELING ABNORMAL [None]
  - MALAISE [None]
